FAERS Safety Report 24450427 (Version 1)
Quarter: 2024Q4

REPORT INFORMATION
  Report Type: Spontaneous
  Country: US (occurrence: US)
  Receive Date: 20241017
  Receipt Date: 20241017
  Transmission Date: 20250115
  Serious: No
  Sender: BAYER HEALTHCARE LLC
  Company Number: US-BAYER-2024A145553

PATIENT
  Age: 48 Year
  Sex: Male

DRUGS (4)
  1. CLARITIN [Suspect]
     Active Substance: LORATADINE
     Indication: Hypersensitivity
     Dosage: 2 DF
     Route: 048
     Dates: start: 20241010, end: 20241010
  2. CLARITIN [Suspect]
     Active Substance: LORATADINE
     Indication: Nasopharyngitis
  3. CLARITIN [Suspect]
     Active Substance: LORATADINE
     Indication: Sneezing
  4. CLARITIN [Suspect]
     Active Substance: LORATADINE
     Indication: Rhinorrhoea

REACTIONS (1)
  - Drug ineffective [Unknown]

NARRATIVE: CASE EVENT DATE: 20241010
